FAERS Safety Report 25628419 (Version 1)
Quarter: 2025Q3

REPORT INFORMATION
  Report Type: Report from Study
  Country: US (occurrence: US)
  Receive Date: 20250731
  Receipt Date: 20250731
  Transmission Date: 20251020
  Serious: Yes (Other)
  Sender: ABBVIE
  Company Number: US-ABBVIE-6084019

PATIENT
  Sex: Male

DRUGS (2)
  1. HUMIRA [Suspect]
     Active Substance: ADALIMUMAB
     Indication: Ankylosing spondylitis
     Route: 058
     Dates: start: 202006
  2. HUMIRA [Suspect]
     Active Substance: ADALIMUMAB
     Route: 058

REACTIONS (5)
  - Sinus disorder [Recovering/Resolving]
  - Nasopharyngitis [Recovering/Resolving]
  - Sinus congestion [Recovering/Resolving]
  - Respiratory tract congestion [Recovering/Resolving]
  - Sinusitis [Recovering/Resolving]
